FAERS Safety Report 18942327 (Version 1)
Quarter: 2021Q1

REPORT INFORMATION
  Report Type: Spontaneous
  Country: US (occurrence: US)
  Receive Date: 20210225
  Receipt Date: 20210225
  Transmission Date: 20210420
  Serious: No
  Sender: FDA-Public Use
  Company Number: US-GUERBET-US-20200191

PATIENT
  Age: 70 Year
  Sex: Male

DRUGS (9)
  1. DIPHENHYDRAMINE. [Concomitant]
     Active Substance: DIPHENHYDRAMINE
     Indication: PREMEDICATION
     Route: 042
  2. ONDANSETRON [Concomitant]
     Active Substance: ONDANSETRON
     Indication: PREMEDICATION
     Route: 042
  3. METRONIDAZOLE. [Concomitant]
     Active Substance: METRONIDAZOLE
     Indication: PREMEDICATION
     Route: 042
  4. LIPIODOL [Suspect]
     Active Substance: ETHIODIZED OIL
     Indication: TRANSCATHETER ARTERIAL CHEMOEMBOLISATION
     Dosage: CONSISTING OF A 2:1 MIXTURE CONTAINING 20 ML LIPIODOL AND 10 ML AQUEOUS CHEMOTHERAPY SOLUTION COMPRI
     Route: 013
  5. MITOMYCIN C [Suspect]
     Active Substance: MITOMYCIN
     Indication: TRANSCATHETER ARTERIAL CHEMOEMBOLISATION
     Dosage: CONSISTING OF A 2:1 MIXTURE CONTAINING 20 ML LIPIODOL AND 10 ML AQUEOUS CHEMOTHERAPY SOLUTION COMPRI
     Route: 013
  6. DOXORUBICIN [Suspect]
     Active Substance: DOXORUBICIN
     Indication: TRANSCATHETER ARTERIAL CHEMOEMBOLISATION
     Dosage: CONSISTING OF A 2:1 MIXTURE CONTAINING 20 ML LIPIODOL AND 10 ML AQUEOUS CHEMOTHERAPY SOLUTION COMPRI
     Route: 013
  7. DEXAMETHASONE. [Concomitant]
     Active Substance: DEXAMETHASONE
     Indication: PREMEDICATION
     Route: 042
  8. EMBOSPHERE [Concomitant]
     Indication: TRANSCATHETER ARTERIAL CHEMOEMBOLISATION
     Dosage: FOUR VIALS OF 100 TO 300 UM MICROSPHERES AND TWO VIALS OF 300 TO 500 UM MICROSPHERES
     Route: 013
  9. CEFAZOLIN [Concomitant]
     Active Substance: CEFAZOLIN
     Indication: PREMEDICATION
     Route: 042

REACTIONS (4)
  - Product use in unapproved indication [Recovered/Resolved]
  - Overdose [Recovered/Resolved]
  - Post embolisation syndrome [Recovered/Resolved]
  - Pyrexia [Recovered/Resolved]
